FAERS Safety Report 9470544 (Version 1)
Quarter: 2013Q3

REPORT INFORMATION
  Report Type: Spontaneous
  Country: US (occurrence: None)
  Receive Date: 20130820
  Receipt Date: 20130820
  Transmission Date: 20140515
  Serious: Yes (Disabling, Other)
  Sender: FDA-Public Use
  Company Number: None

PATIENT
  Age: 21 None
  Sex: Male
  Weight: 72.58 kg

DRUGS (6)
  1. DEPAKOTE [Suspect]
     Indication: BIPOLAR DISORDER
     Route: 048
     Dates: start: 20060210, end: 20060712
  2. COLACE [Concomitant]
  3. ZANAX [Concomitant]
  4. LOSECT [Concomitant]
  5. QVAR [Concomitant]
  6. VENTOLIN INHALER [Concomitant]

REACTIONS (1)
  - Semen viscosity decreased [None]
